FAERS Safety Report 21008072 (Version 1)
Quarter: 2022Q2

REPORT INFORMATION
  Report Type: Spontaneous
  Country: US (occurrence: US)
  Receive Date: 20220627
  Receipt Date: 20220627
  Transmission Date: 20220721
  Serious: No
  Sender: FDA-Public Use
  Company Number: US-JNJFOC-20220627295

PATIENT

DRUGS (2)
  1. BALVERSA [Suspect]
     Active Substance: ERDAFITINIB
     Indication: Metastatic carcinoma of the bladder
     Dosage: SINCE MARCH 1
     Route: 065
  2. BALVERSA [Suspect]
     Active Substance: ERDAFITINIB
     Route: 065

REACTIONS (15)
  - Fatigue [Recovered/Resolved]
  - Vomiting [Recovered/Resolved]
  - Diarrhoea [Not Recovered/Not Resolved]
  - Pain [Recovered/Resolved]
  - Onychomadesis [Unknown]
  - Nail discolouration [Unknown]
  - Nail discomfort [Unknown]
  - Alopecia [Unknown]
  - Dry skin [Unknown]
  - Oral pain [Unknown]
  - Stomatitis [Unknown]
  - Cough [Unknown]
  - Weight decreased [Unknown]
  - Vertigo [Recovered/Resolved]
  - Headache [Recovered/Resolved]
